FAERS Safety Report 8673778 (Version 3)
Quarter: 2012Q4

REPORT INFORMATION
  Report Type: 
  Country: NO (occurrence: NO)
  Receive Date: 20120719
  Receipt Date: 20120830
  Transmission Date: 20130627
  Serious: Yes (Hospitalization, Disabling, Other)
  Sender: FDA-Public Use
  Company Number: NO-009507513-1205USA05307

PATIENT

DRUGS (11)
  1. ZOCOR [Suspect]
     Indication: PRODUCT USED FOR UNKNOWN INDICATION
     Dosage: Dosage Form: Unspecified
     Route: 048
     Dates: start: 201106
  2. REMICADE [Suspect]
     Indication: ANKYLOSING SPONDYLITIS
     Dosage: UNK
     Route: 041
     Dates: start: 2008
  3. REMICADE [Suspect]
     Indication: ANKYLOSING SPONDYLITIS
     Dosage: UNK
     Route: 041
     Dates: start: 20110608, end: 201106
  4. ALBYL-E [Suspect]
     Dosage: Dosage Form: Unspecified
     Route: 065
     Dates: start: 201106
  5. SELO-ZOK [Concomitant]
     Dosage: Dosage Form: Unspecified
     Route: 065
     Dates: start: 201106
  6. FURIX [Concomitant]
     Dosage: Dosage Form: Unspecified
     Route: 065
     Dates: start: 201106
  7. ATACAND PLUS [Concomitant]
     Dosage: Dosage Form: Unspecified
     Route: 065
     Dates: start: 201106
  8. PENTASA [Concomitant]
     Dosage: Dosage Form: Unspecified
     Route: 065
     Dates: start: 201106
  9. PARACET [Concomitant]
  10. PARALGIN FORTE [Concomitant]
  11. LOPERAMIDE HYDROCHLORIDE [Concomitant]

REACTIONS (8)
  - Atrial fibrillation [Unknown]
  - Coronary artery stenosis [Unknown]
  - Subileus [Unknown]
  - Cardiac failure [Unknown]
  - Aortic valve incompetence [Unknown]
  - Aortic valve incompetence [Unknown]
  - Dilatation ventricular [Unknown]
  - Intestinal stenosis [Unknown]
